FAERS Safety Report 11660719 (Version 1)
Quarter: 2015Q4

REPORT INFORMATION
  Report Type: Spontaneous
  Country: US (occurrence: US)
  Receive Date: 20151026
  Receipt Date: 20151026
  Transmission Date: 20160304
  Serious: No
  Sender: FDA-Public Use
  Company Number: US-MEDA-2011080064

PATIENT
  Age: 55 Year
  Sex: Female
  Weight: 59 kg

DRUGS (3)
  1. ASTEPRO [Suspect]
     Active Substance: AZELASTINE HYDROCHLORIDE
     Indication: SEASONAL ALLERGY
     Dates: start: 20110808
  2. ASTEPRO [Suspect]
     Active Substance: AZELASTINE HYDROCHLORIDE
     Indication: HOUSE DUST ALLERGY
     Dates: start: 20110808
  3. OMNARIS [Concomitant]
     Active Substance: CICLESONIDE

REACTIONS (1)
  - Nasal congestion [Recovered/Resolved]

NARRATIVE: CASE EVENT DATE: 20110808
